FAERS Safety Report 7471668-0 (Version None)
Quarter: 2011Q2

REPORT INFORMATION
  Report Type: 
  Country: None (occurrence: None)
  Receive Date: 20110511
  Receipt Date: 20110331
  Transmission Date: 20111010
  Serious: Yes (Hospitalization, Other)
  Sender: FDA-Public Use
  Company Number: US-BAYER-201029529NA

PATIENT
  Age: 43 Year
  Sex: Female
  Weight: 81.633 kg

DRUGS (9)
  1. VYTORIN [Concomitant]
  2. NABUTONE [Concomitant]
  3. LIPITOR [Concomitant]
     Dosage: UNK
     Dates: start: 20060101
  4. LISINOPRIL [Concomitant]
     Dosage: UNK
     Dates: start: 20060101
  5. PROTONIX [Concomitant]
  6. ALTACE [Concomitant]
     Dosage: UNK
     Dates: start: 20060101
  7. YASMIN [Suspect]
     Indication: PRODUCT USED FOR UNKNOWN INDICATION
     Dosage: UNK
     Route: 048
     Dates: start: 20030623, end: 20080708
  8. NSAID'S [Concomitant]
  9. MELICAM [Concomitant]

REACTIONS (4)
  - EMOTIONAL DISTRESS [None]
  - CHOLECYSTITIS CHRONIC [None]
  - GALLBLADDER DISORDER [None]
  - CHOLELITHIASIS [None]
